FAERS Safety Report 9113472 (Version 1)
Quarter: 2013Q1

REPORT INFORMATION
  Report Type: Spontaneous
  Country: US (occurrence: US)
  Receive Date: 20130129
  Receipt Date: 20130129
  Transmission Date: 20140127
  Serious: Yes (Life-Threatening, Hospitalization)
  Sender: FDA-Public Use
  Company Number: US-009507513-1301USA003637

PATIENT
  Age: 63 Year
  Sex: Female

DRUGS (12)
  1. MONTELUKAST SODIUM [Suspect]
     Dosage: 10 MG
     Route: 048
  2. VITAMIN D (UNSPECIFIED) [Suspect]
  3. TRIHEXYPHENIDYL HYDROCHLORIDE [Suspect]
  4. SITAGLIPTIN PHOSPHATE [Suspect]
  5. PAROXETINE [Suspect]
  6. OMEPRAZOLE [Suspect]
  7. MEDROXYPROGESTERONE ACETATE [Suspect]
  8. FAMOTIDINE [Suspect]
  9. ESTROPIPATE [Suspect]
  10. ATORVASTATIN CALCIUM [Suspect]
  11. QUETIAPINE FUMARATE [Suspect]
  12. LORAZEPAM [Suspect]

REACTIONS (9)
  - Hepatic enzyme increased [Unknown]
  - Mood swings [Unknown]
  - Lobar pneumonia [Unknown]
  - Hypokalaemia [Unknown]
  - Gastrointestinal haemorrhage [Unknown]
  - Electrocardiogram QT prolonged [Unknown]
  - Delirium [Unknown]
  - Confusional state [Unknown]
  - Anaemia [Unknown]
